FAERS Safety Report 8523830 (Version 2)
Quarter: 2012Q4

REPORT INFORMATION
  Report Type: 
  Country: US (occurrence: US)
  Receive Date: 20120420
  Receipt Date: 20121015
  Transmission Date: 20130627
  Serious: Yes (Hospitalization, Other)
  Sender: FDA-Public Use
  Company Number: US-US-EMD SERONO, INC.-7126147

PATIENT
  Sex: Female

DRUGS (3)
  1. REBIF [Suspect]
     Indication: MULTIPLE SCLEROSIS
     Route: 058
     Dates: start: 20110613, end: 201112
  2. BIRTH CONTROL [Concomitant]
     Indication: CONTRACEPTION
  3. DICYCLOMINE [Concomitant]
     Indication: IRRITABLE BOWEL SYNDROME

REACTIONS (9)
  - Cerebral autosomal dominant arteriopathy with subcortical infarcts and leukoencephalopathy [Unknown]
  - Thrombosis [Unknown]
  - Cerebrovascular accident [Not Recovered/Not Resolved]
  - CSF white blood cell count increased [Unknown]
  - Blood cholesterol abnormal [Unknown]
  - Blood glucose abnormal [Unknown]
  - Migraine [Recovered/Resolved]
  - Balance disorder [Unknown]
  - Gait disturbance [Unknown]
